FAERS Safety Report 19788409 (Version 1)
Quarter: 2021Q3

REPORT INFORMATION
  Report Type: Spontaneous
  Country: JP (occurrence: JP)
  Receive Date: 20210903
  Receipt Date: 20210903
  Transmission Date: 20211014
  Serious: Yes (Other)
  Sender: FDA-Public Use
  Company Number: JP-MALLINCKRODT PHARMACEUTICALS-T202103915

PATIENT
  Age: 62 Year
  Sex: Male

DRUGS (1)
  1. OFIRMEV [Suspect]
     Active Substance: ACETAMINOPHEN
     Indication: ABDOMINAL PAIN UPPER
     Dosage: UNK
     Route: 042

REACTIONS (2)
  - Condition aggravated [Recovered/Resolved]
  - Abdominal pain upper [Recovered/Resolved]
